FAERS Safety Report 5112896-9 (Version None)
Quarter: 2006Q3

REPORT INFORMATION
  Report Type: 
  Country: None (occurrence: None)
  Receive Date: 20060921
  Receipt Date: 20060921
  Transmission Date: 20061208
  Serious: Yes (Death)
  Sender: FDA-Public Use
  Company Number: None

PATIENT
  Age: 62 Year
  Sex: Male
  Weight: 109.3169 kg

DRUGS (1)
  1. WARFARIN SODIUM [Suspect]
     Indication: ANTICOAGULANT THERAPY
     Dosage: SEE IMAGE
     Route: 048
     Dates: start: 19970101, end: 20060722

REACTIONS (16)
  - ANURIA [None]
  - ASCITES [None]
  - ASTERIXIS [None]
  - BACTERIAL INFECTION [None]
  - CYANOSIS [None]
  - EFFUSION [None]
  - ENDOCARDITIS [None]
  - HYPONATRAEMIA [None]
  - HYPOTENSION [None]
  - INTERNATIONAL NORMALISED RATIO INCREASED [None]
  - MENTAL IMPAIRMENT [None]
  - PERIPHERAL COLDNESS [None]
  - PITTING OEDEMA [None]
  - RENAL FAILURE ACUTE [None]
  - SEPSIS [None]
  - WEIGHT INCREASED [None]
